FAERS Safety Report 20346872 (Version 1)
Quarter: 2022Q1

REPORT INFORMATION
  Report Type: Spontaneous
  Country: CA (occurrence: CA)
  Receive Date: 20220118
  Receipt Date: 20220118
  Transmission Date: 20220424
  Serious: Yes (Hospitalization)
  Sender: FDA-Public Use
  Company Number: CA-PFIZER INC-202200026054

PATIENT
  Age: 45 Year
  Sex: Male
  Weight: 108 kg

DRUGS (18)
  1. INLYTA [Suspect]
     Active Substance: AXITINIB
     Indication: Clear cell renal cell carcinoma
     Dosage: 3 MG, 2X/DAY
     Route: 048
  2. KEYTRUDA [Suspect]
     Active Substance: PEMBROLIZUMAB
     Indication: Clear cell renal cell carcinoma
     Dosage: 200 MG, 1 EVERY 4 WEEKS
     Route: 041
  3. ALLOPURINOL [Concomitant]
     Active Substance: ALLOPURINOL
     Dosage: UNK
  4. CANDESARTAN [Concomitant]
     Active Substance: CANDESARTAN
     Dosage: UNK
  5. HYDROCHLOROTHIAZIDE [Concomitant]
     Active Substance: HYDROCHLOROTHIAZIDE
     Dosage: UNK
  6. HYDROCORTISONE [Concomitant]
     Active Substance: HYDROCORTISONE
     Dosage: UNK
  7. JANUMET [Concomitant]
     Active Substance: METFORMIN HYDROCHLORIDE\SITAGLIPTIN PHOSPHATE
     Dosage: UNK
     Route: 065
  8. LOPERAMIDE [Concomitant]
     Active Substance: LOPERAMIDE
     Dosage: UNK
  9. LORAZEPAM [Concomitant]
     Active Substance: LORAZEPAM
     Dosage: UNK
  10. NORVASC [Concomitant]
     Active Substance: AMLODIPINE BESYLATE
     Dosage: UNK
  11. PREGABALIN [Concomitant]
     Active Substance: PREGABALIN
     Dosage: UNK
  12. PROCHLORAZINE [Concomitant]
     Dosage: UNK
  13. ROSUVASTATIN [Concomitant]
     Active Substance: ROSUVASTATIN
     Dosage: UNK
     Route: 065
  14. SYNTHROID [Concomitant]
     Active Substance: LEVOTHYROXINE SODIUM
     Dosage: UNK
  15. TERAZOSIN [Concomitant]
     Active Substance: TERAZOSIN HYDROCHLORIDE
     Dosage: UNK
  16. TRESIBA [Concomitant]
     Active Substance: INSULIN DEGLUDEC
     Dosage: UNK
  17. UREA [Concomitant]
     Active Substance: UREA
     Dosage: UNK
  18. VENLAFAXINE HYDROCHLORIDE [Concomitant]
     Active Substance: VENLAFAXINE HYDROCHLORIDE
     Dosage: UNK

REACTIONS (17)
  - Acute kidney injury [Recovering/Resolving]
  - Anorectal disorder [Recovering/Resolving]
  - Cheilitis [Recovering/Resolving]
  - Decreased appetite [Recovering/Resolving]
  - Drug eruption [Recovering/Resolving]
  - Dyschezia [Recovering/Resolving]
  - Epistaxis [Recovering/Resolving]
  - Hypophagia [Recovering/Resolving]
  - Lichenoid keratosis [Recovering/Resolving]
  - Lip haemorrhage [Recovering/Resolving]
  - Mucosal inflammation [Recovering/Resolving]
  - Oral pain [Recovering/Resolving]
  - Penis disorder [Recovering/Resolving]
  - Rash [Recovering/Resolving]
  - Rectal haemorrhage [Recovering/Resolving]
  - Rectal lesion [Recovering/Resolving]
  - Weight decreased [Recovering/Resolving]
